FAERS Safety Report 10247537 (Version 1)
Quarter: 2014Q2

REPORT INFORMATION
  Report Type: Spontaneous
  Country: FR (occurrence: None)
  Receive Date: 20140617
  Receipt Date: 20140617
  Transmission Date: 20141212
  Serious: Yes (Hospitalization)
  Sender: FDA-Public Use
  Company Number: 7297176

PATIENT
  Age: 84 Year
  Sex: Female

DRUGS (10)
  1. PREVISCAN (FLUINDIONE) (FLUINDIONE) [Suspect]
     Indication: PRODUCT USED FOR UNKNOWN INDICATION
     Dosage: 1 DF (1 DF, 1 IN 1 D), ORAL ?
     Route: 048
     Dates: end: 20140202
  2. LEVOTHYROX [Suspect]
     Indication: PRODUCT USED FOR UNKNOWN INDICATION
     Route: 048
  3. AMIODARONE (AMIODARONE) (AMIODARONE) [Concomitant]
  4. HYPERIUM /00939801/ (RILMENIDINE) (RILMENIDINE) [Concomitant]
  5. SYMBICORT (BUDESONIDE W/PORMOTEROL FUMARATE) (FORMOTEROL FUMARATE, BUDESONIDE) ? [Concomitant]
  6. CRESTOR /01588601/ (ROSUVASTATIN) (ROSUVASTATIN) [Concomitant]
  7. ZYLORIC /00003301/ (ALLOPURINOL) (ALLOPURINOL) [Concomitant]
  8. MOPRAL /00661201/ (OMEPRAZOLE) (OMEPRAZOLE) [Concomitant]
  9. PYOSTACINE (PRISTINAMYCIN) (PRISTINAMYCIN) [Concomitant]
  10. TIORFAN (ACETORPHAN) (ACETORPHAN) [Concomitant]

REACTIONS (10)
  - Anaemia [None]
  - Epistaxis [None]
  - Haematoma [None]
  - Abdominal pain [None]
  - Malaise [None]
  - Loss of consciousness [None]
  - International normalised ratio increased [None]
  - Cardiac failure [None]
  - Asthma [None]
  - Pulmonary embolism [None]
